FAERS Safety Report 19177026 (Version 1)
Quarter: 2021Q2

REPORT INFORMATION
  Report Type: Spontaneous
  Country: GB (occurrence: GB)
  Receive Date: 20210424
  Receipt Date: 20210424
  Transmission Date: 20210717
  Serious: Yes (Other)
  Sender: FDA-Public Use
  Company Number: NVSC2021GB086622

PATIENT
  Age: 42 Year
  Sex: Male
  Weight: 109 kg

DRUGS (8)
  1. TIMOLOL. [Concomitant]
     Active Substance: TIMOLOL
     Indication: ILL-DEFINED DISORDER
     Dosage: 1 DRP, QD (TO BOTH EYES)
     Route: 065
     Dates: start: 20210124, end: 20210323
  2. VISCOTEARS [Concomitant]
     Active Substance: CARBOMER
     Indication: ILL-DEFINED DISORDER
     Dosage: 1 DRP (AS NEEDED)
     Route: 065
     Dates: start: 20190719, end: 20210323
  3. PHENOXYMETHYLPENICILLIN (= PENICILLIN V) [Suspect]
     Active Substance: PENICILLIN V
     Indication: ILL-DEFINED DISORDER
     Dosage: UNK
     Route: 065
     Dates: start: 20210310
  4. MONOPOST [Concomitant]
     Active Substance: LATANOPROST
     Indication: ILL-DEFINED DISORDER
     Dosage: 1 DRP, QD (AT NIGHT TO BOTH EYES)
     Route: 065
     Dates: start: 20201117, end: 20210124
  5. NAPROXEN. [Concomitant]
     Active Substance: NAPROXEN
     Indication: ILL-DEFINED DISORDER
     Dosage: 1 DF, BID (TAKE WITH OR JUST)
     Route: 065
     Dates: start: 20210216, end: 20210302
  6. TAMSULOSIN HYDROCHLORIDE. [Concomitant]
     Active Substance: TAMSULOSIN HYDROCHLORIDE
     Indication: ILL-DEFINED DISORDER
     Dosage: 1 DF, QD
     Route: 065
     Dates: start: 20210101, end: 20210131
  7. OMEPRAZOLE. [Concomitant]
     Active Substance: OMEPRAZOLE
     Indication: ILL-DEFINED DISORDER
     Dosage: 1 DF, QD (TAKE ALONGSIDE ANTI?INFLAMMATOR)
     Route: 065
     Dates: start: 20210216, end: 20210316
  8. PROMETHAZINE HYDROCHLORIDE. [Concomitant]
     Active Substance: PROMETHAZINE HYDROCHLORIDE
     Indication: ILL-DEFINED DISORDER
     Dosage: 1 DF, QD (AT NIGHT AS REQUIRED FOR SLEEP)
     Route: 065
     Dates: start: 20210216, end: 20210316

REACTIONS (1)
  - Hypersensitivity [Unknown]

NARRATIVE: CASE EVENT DATE: 20210310
